FAERS Safety Report 9464946 (Version 1)
Quarter: 2013Q3

REPORT INFORMATION
  Report Type: Report from Study
  Country: US (occurrence: US)
  Receive Date: 20130819
  Receipt Date: 20130819
  Transmission Date: 20140515
  Serious: Yes (Disabling, Other)
  Sender: FDA-Public Use
  Company Number: US-ABBOTT-13P-163-1132122-00

PATIENT
  Age: 58 Year
  Sex: Male
  Weight: 99.88 kg

DRUGS (5)
  1. HUMIRA [Suspect]
     Indication: SPONDYLOARTHROPATHY
     Dates: start: 2007
  2. LISINOPRIL [Concomitant]
     Indication: HYPERTENSION
  3. LANSOPRAZOLE [Concomitant]
     Indication: GASTROOESOPHAGEAL REFLUX DISEASE
  4. AMLODIPINE [Concomitant]
     Indication: HYPERTENSION
  5. LACTULOSE [Concomitant]
     Indication: CONSTIPATION

REACTIONS (12)
  - Ligament sprain [Not Recovered/Not Resolved]
  - Contusion [Recovered/Resolved]
  - Contusion [Recovered/Resolved]
  - Pain [Not Recovered/Not Resolved]
  - Paraesthesia [Not Recovered/Not Resolved]
  - Ligament sprain [Not Recovered/Not Resolved]
  - Anxiety [Not Recovered/Not Resolved]
  - Hypoaesthesia [Not Recovered/Not Resolved]
  - Nerve injury [Not Recovered/Not Resolved]
  - Road traffic accident [Not Recovered/Not Resolved]
  - Road traffic accident [Not Recovered/Not Resolved]
  - Head injury [Not Recovered/Not Resolved]
